FAERS Safety Report 17888462 (Version 2)
Quarter: 2020Q3

REPORT INFORMATION
  Report Type: Spontaneous
  Country: US (occurrence: US)
  Receive Date: 20200612
  Receipt Date: 20200709
  Transmission Date: 20201103
  Serious: No
  Sender: FDA-Public Use
  Company Number: US-MYLANLABS-2020M1055647

PATIENT
  Sex: Female

DRUGS (1)
  1. ESTRADIOL TRANSDERMAL SYSTEM [Suspect]
     Active Substance: ESTRADIOL
     Indication: PRODUCT USED FOR UNKNOWN INDICATION
     Dosage: TWICE WEEKLY, 0.1 MG/DAY
     Route: 062

REACTIONS (5)
  - Product adhesion issue [Unknown]
  - Rash [Recovered/Resolved]
  - Urticaria [Unknown]
  - Pruritus [Unknown]
  - Erythema [Unknown]
